FAERS Safety Report 8394928-8 (Version None)
Quarter: 2012Q2

REPORT INFORMATION
  Report Type: 
  Country: None (occurrence: None)
  Receive Date: 20120530
  Receipt Date: 20110808
  Transmission Date: 20120825
  Serious: No
  Sender: FDA-Public Use
  Company Number: US-GLAXOSMITHKLINE-A0940951A

PATIENT
  Age: 63 Year
  Sex: Female
  Weight: 82 kg

DRUGS (10)
  1. PRILOSEC [Concomitant]
     Dosage: 20MG PER DAY
  2. SIMVASTATIN [Concomitant]
     Dosage: 20MG PER DAY
  3. VITAMIN D [Concomitant]
     Dosage: 800UNIT PER DAY
  4. VITAMIN C [Concomitant]
     Dosage: 500MG PER DAY
  5. POTASSIUM CHLORIDE [Concomitant]
     Dosage: 10MEQ AS REQUIRED
  6. REVATIO [Concomitant]
     Dosage: 40MG THREE TIMES PER DAY
  7. FOLIC ACID [Concomitant]
     Dosage: 1MG PER DAY
  8. CALCIUM [Concomitant]
     Dosage: 1200MG PER DAY
  9. LASIX [Concomitant]
     Dosage: 40MG AS REQUIRED
  10. FLOLAN [Suspect]
     Indication: PULMONARY ARTERIAL HYPERTENSION
     Dosage: 4NGKM UNKNOWN
     Route: 065
     Dates: start: 20110802

REACTIONS (3)
  - DYSPNOEA [None]
  - ASTHENIA [None]
  - ABDOMINAL PAIN [None]
